FAERS Safety Report 5502902-1 (Version None)
Quarter: 2007Q4

REPORT INFORMATION
  Report Type: 
  Country: None (occurrence: None)
  Receive Date: 20071031
  Receipt Date: 20070326
  Transmission Date: 20080405
  Serious: No
  Sender: FDA-Public Use
  Company Number: US-ASTRAZENECA-2007UW06022

PATIENT

DRUGS (1)
  1. NEXIUM [Suspect]
     Route: 042

REACTIONS (1)
  - SKIN LACERATION [None]
